FAERS Safety Report 18266894 (Version 1)
Quarter: 2020Q3

REPORT INFORMATION
  Report Type: Spontaneous
  Country: CN (occurrence: CN)
  Receive Date: 20200915
  Receipt Date: 20200915
  Transmission Date: 20201103
  Serious: Yes (Other)
  Sender: FDA-Public Use
  Company Number: CN-ACCORD-201015

PATIENT
  Age: 59 Year
  Sex: Female

DRUGS (1)
  1. LETROZOLE. [Suspect]
     Active Substance: LETROZOLE
     Indication: MUCINOUS BREAST CARCINOMA
     Dosage: FOR 5 YEARS

REACTIONS (1)
  - Neutropenia [Unknown]
